FAERS Safety Report 11153295 (Version 1)
Quarter: 2015Q2

REPORT INFORMATION
  Report Type: Spontaneous
  Country: US (occurrence: US)
  Receive Date: 20150601
  Receipt Date: 20150601
  Transmission Date: 20150821
  Serious: Yes (Hospitalization)
  Sender: FDA-Public Use
  Company Number: PHHY2015US063798

PATIENT
  Age: 67 Year
  Sex: Female

DRUGS (4)
  1. CEFEPIME [Concomitant]
     Active Substance: CEFEPIME\CEFEPIME HYDROCHLORIDE
     Indication: CHOLECYSTITIS
     Route: 065
  2. METRONIDAZOLE. [Concomitant]
     Active Substance: METRONIDAZOLE
     Indication: CHOLECYSTITIS
     Route: 065
  3. DAPTOMYCIN. [Concomitant]
     Active Substance: DAPTOMYCIN
     Indication: ENTEROCOCCAL INFECTION
     Route: 065
  4. METHOTREXATE [Suspect]
     Active Substance: METHOTREXATE
     Indication: PSORIASIS
     Dosage: 10 MG, QID
     Route: 048

REACTIONS (13)
  - Diarrhoea [Recovering/Resolving]
  - Neutropenia [Unknown]
  - Oral pain [Unknown]
  - Pancytopenia [Recovering/Resolving]
  - Bone marrow failure [Recovering/Resolving]
  - Mouth ulceration [Unknown]
  - Cholelithiasis [Unknown]
  - Pyrexia [Unknown]
  - Tachycardia [Recovered/Resolved]
  - Accidental overdose [Recovering/Resolving]
  - Acute leukaemia [Recovering/Resolving]
  - Toxicity to various agents [Recovering/Resolving]
  - Cholecystitis [Unknown]
